FAERS Safety Report 7801511-9 (Version None)
Quarter: 2011Q4

REPORT INFORMATION
  Report Type: 
  Country: None (occurrence: None)
  Receive Date: 20111007
  Receipt Date: 20110928
  Transmission Date: 20120403
  Serious: Yes (Hospitalization)
  Sender: FDA-Public Use
  Company Number: CELGENEUS-087-21880-11090552

PATIENT
  Sex: Female

DRUGS (28)
  1. ALOSENN [Concomitant]
     Dosage: .5 GRAM
     Route: 048
     Dates: start: 20100813, end: 20101020
  2. MAGMITT [Concomitant]
     Dosage: 990 MILLIGRAM
     Route: 048
     Dates: start: 20101029
  3. ASPIRIN [Concomitant]
     Indication: PROPHYLAXIS
     Dosage: 100 MILLIGRAM
     Route: 048
  4. REVLIMID [Suspect]
     Dosage: 15 MILLIGRAM
     Route: 048
     Dates: start: 20110317, end: 20110406
  5. REVLIMID [Suspect]
     Dosage: 15 MILLIGRAM
     Route: 048
     Dates: start: 20110614, end: 20110703
  6. DEXAMETHASONE [Suspect]
     Dosage: 40 MILLIGRAM
     Route: 048
     Dates: start: 20100906, end: 20100925
  7. TEGRETOL [Concomitant]
     Dosage: 200 MILLIGRAM
     Route: 048
     Dates: end: 20101020
  8. ACETAMINOPHEN [Concomitant]
     Dosage: 600 MILLIGRAM
     Route: 048
     Dates: start: 20100813, end: 20101020
  9. EBRANTIL [Concomitant]
     Indication: PROPHYLAXIS
     Dosage: 30 MILLIGRAM
     Route: 048
  10. DEXAMETHASONE [Suspect]
     Dosage: 40 MILLIGRAM
     Route: 048
     Dates: start: 20101004, end: 20101015
  11. DEXAMETHASONE [Suspect]
     Dosage: 40 MILLIGRAM
     Route: 048
     Dates: start: 20110218, end: 20110221
  12. ACETAMINOPHEN [Concomitant]
     Dosage: 400 MILLIGRAM
     Route: 048
     Dates: start: 20110106
  13. REVLIMID [Suspect]
     Dosage: 15 MILLIGRAM
     Route: 048
     Dates: start: 20110524, end: 20110607
  14. CODEINE PHOSPHATE [Concomitant]
     Dosage: 60 MILLIGRAM
     Route: 048
     Dates: start: 20100813, end: 20101020
  15. PURSENNID [Concomitant]
     Dosage: 12 MILLIGRAM
     Route: 048
     Dates: end: 20101020
  16. FUROSEMIDE [Concomitant]
     Indication: PROPHYLAXIS
     Dosage: 10 MILLIGRAM
     Route: 048
     Dates: start: 20100813, end: 20101020
  17. REVLIMID [Suspect]
     Indication: MULTIPLE MYELOMA
     Dosage: 25 MILLIGRAM
     Route: 048
     Dates: start: 20100809, end: 20100829
  18. REVLIMID [Suspect]
     Dosage: 15 MILLIGRAM
     Route: 048
     Dates: start: 20110412, end: 20110502
  19. UBRETID [Concomitant]
     Indication: PROPHYLAXIS
     Dosage: 5 MILLIGRAM
     Route: 048
  20. REVLIMID [Suspect]
     Dosage: 25 MILLIGRAM
     Route: 048
     Dates: start: 20101004, end: 20101020
  21. REVLIMID [Suspect]
     Dosage: 15 MILLIGRAM
     Route: 048
     Dates: start: 20110510, end: 20110516
  22. DEXAMETHASONE [Suspect]
     Indication: MULTIPLE MYELOMA
     Dosage: 40 MILLIGRAM
     Route: 048
     Dates: start: 20100809, end: 20100828
  23. LASIX [Concomitant]
     Indication: PROPHYLAXIS
     Dosage: 10 MILLIGRAM
     Route: 048
     Dates: end: 20100812
  24. REVLIMID [Suspect]
     Dosage: 25 MILLIGRAM
     Route: 048
     Dates: start: 20100906, end: 20100926
  25. REVLIMID [Suspect]
     Dosage: 15 MILLIGRAM
     Route: 048
     Dates: start: 20110218, end: 20110309
  26. MAGNESIUM OXIDE [Concomitant]
     Dosage: 1 GRAM
     Route: 048
     Dates: end: 20101020
  27. METHYCOBAL [Concomitant]
     Dosage: 1500 MICROGRAM
     Route: 048
     Dates: start: 20110120
  28. PELTAZON [Concomitant]
     Dosage: 25 MILLIGRAM
     Route: 048
     Dates: start: 20110607

REACTIONS (5)
  - DEHYDRATION [None]
  - HYPOKALAEMIA [None]
  - INSOMNIA [None]
  - NEUROGENIC BLADDER [None]
  - URINARY TRACT INFECTION [None]
